FAERS Safety Report 22616590 (Version 1)
Quarter: 2023Q2

REPORT INFORMATION
  Report Type: Spontaneous
  Country: GB (occurrence: GB)
  Receive Date: 20230619
  Receipt Date: 20230619
  Transmission Date: 20230722
  Serious: Yes (Other)
  Sender: FDA-Public Use
  Company Number: GB-TAKEDA-2022TUS034193

PATIENT
  Age: 72 Year
  Sex: Male

DRUGS (1)
  1. ENTYVIO [Suspect]
     Active Substance: VEDOLIZUMAB
     Indication: Colitis ulcerative
     Dosage: 300 MILLIGRAM, Q4WEEKS
     Route: 042

REACTIONS (6)
  - Colitis ulcerative [Unknown]
  - Frequent bowel movements [Unknown]
  - Pollakiuria [Unknown]
  - Weight decreased [Unknown]
  - Anal incontinence [Unknown]
  - Decreased appetite [Unknown]
